FAERS Safety Report 18348570 (Version 2)
Quarter: 2020Q4

REPORT INFORMATION
  Report Type: Report from Study
  Country: US (occurrence: US)
  Receive Date: 20201006
  Receipt Date: 20201013
  Transmission Date: 20210114
  Serious: Yes (Life-Threatening, Hospitalization, Other)
  Sender: FDA-Public Use
  Company Number: US-PFIZER INC-2020382714

PATIENT
  Age: 50 Year
  Sex: Male

DRUGS (2)
  1. FENTANYL CITRATE. [Suspect]
     Active Substance: FENTANYL CITRATE
     Dosage: UNK
  2. COCAINE [Suspect]
     Active Substance: COCAINE
     Dosage: UNK

REACTIONS (4)
  - Brain injury [Recovering/Resolving]
  - Brain oedema [Recovering/Resolving]
  - Hydrocephalus [Recovering/Resolving]
  - Unresponsive to stimuli [Recovered/Resolved]
